FAERS Safety Report 25500927 (Version 5)
Quarter: 2025Q4

REPORT INFORMATION
  Report Type: Report from Study
  Country: US (occurrence: US)
  Receive Date: 20250701
  Receipt Date: 20251014
  Transmission Date: 20260118
  Serious: Yes (Other)
  Sender: MALLINCKRODT
  Company Number: US-MALLINCKRODT-MNK202503844

PATIENT
  Age: 77 Year
  Sex: Female

DRUGS (1)
  1. CORTICOTROPIN [Suspect]
     Active Substance: CORTICOTROPIN
     Indication: Uveitis
     Dosage: 80 UNITS
     Route: 058
     Dates: start: 20240930

REACTIONS (9)
  - Uveitis [Unknown]
  - Eye pain [Recovered/Resolved]
  - Eye swelling [Recovered/Resolved]
  - Eyelid pain [Recovered/Resolved]
  - Vision blurred [Unknown]
  - Ocular hyperaemia [Not Recovered/Not Resolved]
  - Lacrimation increased [Unknown]
  - Stress [Unknown]
  - Fatigue [Unknown]

NARRATIVE: CASE EVENT DATE: 20250501
